FAERS Safety Report 5792788-2 (Version None)
Quarter: 2008Q2

REPORT INFORMATION
  Report Type: 
  Country: None (occurrence: None)
  Receive Date: 20080627
  Receipt Date: 20080228
  Transmission Date: 20081010
  Serious: No
  Sender: FDA-Public Use
  Company Number: US-BAYER-200815862NA

PATIENT
  Age: 32 Year
  Sex: Female
  Weight: 82 kg

DRUGS (1)
  1. MIRENA [Suspect]
     Indication: CONTRACEPTION
     Route: 015
     Dates: start: 20070730, end: 20080108

REACTIONS (9)
  - ABDOMINAL PAIN [None]
  - BACK PAIN [None]
  - BONE PAIN [None]
  - DEPRESSION [None]
  - GENITAL HAEMORRHAGE [None]
  - HEADACHE [None]
  - MOOD SWINGS [None]
  - PROCEDURAL PAIN [None]
  - VAGINAL DISCHARGE [None]
